FAERS Safety Report 8939141 (Version 2)
Quarter: 2013Q1

REPORT INFORMATION
  Report Type: Spontaneous
  Country: US (occurrence: US)
  Receive Date: 20121203
  Receipt Date: 20130109
  Transmission Date: 20140127
  Serious: No
  Sender: FDA-Public Use
  Company Number: US-PFIZER INC-2012300550

PATIENT
  Sex: Male

DRUGS (2)
  1. DILANTIN-125 [Suspect]
     Indication: EPILEPSY
     Dosage: 50 MG, UNK
     Dates: start: 1959
  2. DILANTIN-125 [Suspect]
     Dosage: 100 MG, UNK

REACTIONS (3)
  - Tooth fracture [Unknown]
  - Swelling face [Recovered/Resolved]
  - Pain [Unknown]
